FAERS Safety Report 20855934 (Version 2)
Quarter: 2022Q3

REPORT INFORMATION
  Report Type: Spontaneous
  Country: US (occurrence: US)
  Receive Date: 20220520
  Receipt Date: 20220818
  Transmission Date: 20221026
  Serious: No
  Sender: FDA-Public Use
  Company Number: US-PFIZER INC-202200712675

PATIENT
  Age: 72 Year
  Sex: Male
  Weight: 78.02 kg

DRUGS (1)
  1. ZOLOFT [Suspect]
     Active Substance: SERTRALINE HYDROCHLORIDE
     Indication: Post-traumatic stress disorder
     Dosage: 100 MG, 2X/DAY

REACTIONS (1)
  - Drug screen positive [Unknown]

NARRATIVE: CASE EVENT DATE: 20220501
